FAERS Safety Report 9669329 (Version 1)
Quarter: 2013Q4

REPORT INFORMATION
  Report Type: Spontaneous
  Country: DE (occurrence: DE)
  Receive Date: 20131105
  Receipt Date: 20131105
  Transmission Date: 20140711
  Serious: Yes (Death, Hospitalization, Other)
  Sender: FDA-Public Use
  Company Number: DE-SA-2013SA110583

PATIENT
  Age: 89 Year
  Sex: Female

DRUGS (5)
  1. AMARYL [Suspect]
     Indication: PRODUCT USED FOR UNKNOWN INDICATION
     Route: 065
     Dates: start: 201307
  2. DELIX [Concomitant]
  3. DECORTIN [Concomitant]
  4. MELPERONE [Concomitant]
  5. FUROSEMIDE [Concomitant]

REACTIONS (6)
  - Hypoglycaemia [Fatal]
  - Coma [Unknown]
  - Dyspnoea [Unknown]
  - Brain injury [Unknown]
  - Atrioventricular block [Unknown]
  - Renal failure [Unknown]
